FAERS Safety Report 26054523 (Version 1)
Quarter: 2025Q4

REPORT INFORMATION
  Report Type: Spontaneous
  Country: US (occurrence: None)
  Receive Date: 20251117
  Receipt Date: 20251117
  Transmission Date: 20260118
  Serious: Yes (Hospitalization)
  Sender: FDA-CTU
  Company Number: None

PATIENT
  Age: 78 Year
  Sex: Male

DRUGS (11)
  1. LEQVIO [Suspect]
     Active Substance: INCLISIRAN SODIUM
     Dosage: OTHER FREQUENCY : Q6 MO;?
     Route: 058
  2. COLCHICINE [Concomitant]
     Active Substance: COLCHICINE
  3. PANTOPRAZOLE [Concomitant]
     Active Substance: PANTOPRAZOLE
  4. LOSARTAN POTASSIUM [Concomitant]
     Active Substance: LOSARTAN POTASSIUM
  5. ELIQUIS [Concomitant]
     Active Substance: APIXABAN
  6. ALBUTEROL HFA INH(200 PUFFS) 18GM [Concomitant]
  7. ACCU-CHEK GUIDE ME KIT [Concomitant]
  8. DULOXETINE [Concomitant]
     Active Substance: DULOXETINE
  9. GABAPENTIN [Concomitant]
     Active Substance: GABAPENTIN
  10. RIVASTIGMINE 3MG CAPSULES [Concomitant]
  11. SILODOSIN SMG CAPSULES [Concomitant]

REACTIONS (1)
  - Haematoma muscle [None]

NARRATIVE: CASE EVENT DATE: 20251114
